FAERS Safety Report 13423214 (Version 1)
Quarter: 2017Q2

REPORT INFORMATION
  Report Type: Spontaneous
  Country: US (occurrence: US)
  Receive Date: 20170410
  Receipt Date: 20170410
  Transmission Date: 20170830
  Serious: Yes (Life-Threatening, Hospitalization, Other)
  Sender: FDA-Public Use
  Company Number: None

PATIENT
  Age: 79 Year
  Sex: Female
  Weight: 74.2 kg

DRUGS (1)
  1. LINEZOLID. [Suspect]
     Active Substance: LINEZOLID
     Indication: WOUND
     Dates: start: 20170317, end: 20170331

REACTIONS (2)
  - Gingival bleeding [None]
  - Thrombocytopenia [None]

NARRATIVE: CASE EVENT DATE: 20170401
